FAERS Safety Report 7563854-6 (Version None)
Quarter: 2011Q2

REPORT INFORMATION
  Report Type: 
  Country: None (occurrence: None)
  Receive Date: 20110622
  Receipt Date: 20110620
  Transmission Date: 20111010
  Serious: Yes (Death, Hospitalization, Other)
  Sender: FDA-Public Use
  Company Number: GB-GENZYME-201020054GPV

PATIENT
  Sex: Male
  Weight: 54 kg

DRUGS (2)
  1. VIGAM [Concomitant]
     Indication: PANCYTOPENIA
     Dosage: UNK, UNK
     Dates: start: 20091012, end: 20091016
  2. CAMPATH [Suspect]
     Indication: CHRONIC LYMPHOCYTIC LEUKAEMIA
     Dosage: 30 MG TIW
     Route: 058
     Dates: start: 20090706, end: 20090824

REACTIONS (6)
  - CYTOMEGALOVIRUS INFECTION [None]
  - DIFFUSE LARGE B-CELL LYMPHOMA [None]
  - THROMBOCYTOPENIA [None]
  - NEUTROPENIC SEPSIS [None]
  - LUNG INFECTION [None]
  - ANAEMIA [None]
